FAERS Safety Report 24328408 (Version 2)
Quarter: 2024Q3

REPORT INFORMATION
  Report Type: Report from Study
  Country: US (occurrence: US)
  Receive Date: 20240917
  Receipt Date: 20240926
  Transmission Date: 20241017
  Serious: Yes (Hospitalization)
  Sender: ABBVIE
  Company Number: US-ABBVIE-5923608

PATIENT
  Age: 75 Year
  Sex: Female

DRUGS (1)
  1. RINVOQ [Suspect]
     Active Substance: UPADACITINIB
     Indication: Dermatitis atopic
     Dosage: LAST ADMIN DATE: 2024
     Route: 048
     Dates: start: 20240702

REACTIONS (10)
  - Dementia [Not Recovered/Not Resolved]
  - Headache [Unknown]
  - Back pain [Unknown]
  - Somnolence [Unknown]
  - Nausea [Unknown]
  - Hearing aid user [Unknown]
  - Confusional state [Unknown]
  - Somnolence [Unknown]
  - Product administration error [Unknown]
  - Abdominal pain upper [Unknown]

NARRATIVE: CASE EVENT DATE: 20240907
